FAERS Safety Report 9207635 (Version 2)
Quarter: 2013Q2

REPORT INFORMATION
  Report Type: Spontaneous
  Country: GB (occurrence: GB)
  Receive Date: 20130403
  Receipt Date: 20130408
  Transmission Date: 20140414
  Serious: Yes (Hospitalization, Other)
  Sender: FDA-Public Use
  Company Number: GB-TEVA-394565ISR

PATIENT
  Age: 70 Year
  Sex: Male

DRUGS (2)
  1. MIRTAZAPINE [Suspect]
     Indication: BIPOLAR DISORDER
     Dosage: INTERR 2012 RES AUTUMN 2012
     Dates: start: 2010
  2. ABILIFY [Suspect]
     Indication: BIPOLAR DISORDER
     Dosage: INTERR 2012 RES AUTUMN 2012
     Route: 048
     Dates: start: 2010

REACTIONS (1)
  - Embolism venous [Unknown]
